FAERS Safety Report 8709399 (Version 2)
Quarter: 2013Q4

REPORT INFORMATION
  Report Type: Spontaneous
  Country: BR (occurrence: BR)
  Receive Date: 20120806
  Receipt Date: 20131031
  Transmission Date: 20140711
  Serious: Yes (Other)
  Sender: FDA-Public Use
  Company Number: BR-009507513-1208BRA000870

PATIENT
  Sex: Female

DRUGS (1)
  1. SAFLUTAN [Suspect]
     Dosage: UNK, UNKNOWN
     Route: 047

REACTIONS (1)
  - Blindness transient [Unknown]
